FAERS Safety Report 15654899 (Version 8)
Quarter: 2021Q1

REPORT INFORMATION
  Report Type: Report from Study
  Country: DE (occurrence: DE)
  Receive Date: 20181126
  Receipt Date: 20210125
  Transmission Date: 20210419
  Serious: Yes (Hospitalization, Other)
  Sender: FDA-Public Use
  Company Number: DE-BRISTOL-MYERS SQUIBB COMPANY-BMS-2018-108806

PATIENT
  Age: 54 Year
  Sex: Male

DRUGS (8)
  1. PANTOPRAZOLE SODIUM. [Concomitant]
     Active Substance: PANTOPRAZOLE SODIUM
     Indication: PRODUCT USED FOR UNKNOWN INDICATION
     Route: 065
  2. METHYLPREDNISOLONE. [Concomitant]
     Active Substance: METHYLPREDNISOLONE
     Indication: PRODUCT USED FOR UNKNOWN INDICATION
     Dosage: UNK
     Route: 065
  3. IPILIMUMAB [Suspect]
     Active Substance: IPILIMUMAB
     Dosage: 205 MILLIGRAM, Q3WK
     Route: 065
     Dates: end: 20181102
  4. NIVOLUMAB [Suspect]
     Active Substance: NIVOLUMAB
     Indication: MALIGNANT MELANOMA
     Dosage: 70 MILLIGRAM, Q3WK
     Route: 042
     Dates: start: 20180830
  5. NIVOLUMAB [Suspect]
     Active Substance: NIVOLUMAB
     Dosage: 200 MILLIGRAM, Q2WK
     Route: 042
     Dates: start: 20190130
  6. PREDNISOLON [PREDNISOLONE] [Concomitant]
     Active Substance: PREDNISOLONE
     Indication: PRODUCT USED FOR UNKNOWN INDICATION
     Dosage: UNK
     Route: 065
  7. IPILIMUMAB [Suspect]
     Active Substance: IPILIMUMAB
     Indication: MALIGNANT MELANOMA
     Dosage: 210 MILLIGRAM, Q3WK
     Route: 065
     Dates: start: 20180830
  8. NIVOLUMAB [Suspect]
     Active Substance: NIVOLUMAB
     Dosage: 240 MILLIGRAM, Q2WK
     Route: 042

REACTIONS (3)
  - Off label use [Unknown]
  - Hyperbilirubinaemia [Recovering/Resolving]
  - Headache [Recovered/Resolved]

NARRATIVE: CASE EVENT DATE: 20181109
